FAERS Safety Report 10270065 (Version 1)
Quarter: 2014Q2

REPORT INFORMATION
  Report Type: Spontaneous
  Country: JP (occurrence: None)
  Receive Date: 20140625
  Receipt Date: 20140625
  Transmission Date: 20141212
  Serious: Yes (Death)
  Sender: FDA-Public Use
  Company Number: 2014JP00607

PATIENT
  Sex: 0

DRUGS (3)
  1. GEMCITABINE (GEMCITABINE) INJECTION [Suspect]
     Indication: BILIARY CANCER METASTATIC
     Dosage: 1000 MG/M2 DAY 1 AND DAY 8
  2. GEMCITABINE (GEMCITABINE) INJECTION [Suspect]
     Dosage: 1000 MG/M2 DAY 1 AND DAY 8
  3. S1 [Suspect]
     Indication: BILIARY CANCER METASTATIC
     Dosage: 60 MG/M2, TWICE DAILY ON DAYS 1-14, REPEATED EVERY 3 WEEKS

REACTIONS (1)
  - Myocardial infarction [None]
